FAERS Safety Report 6892227-4 (Version None)
Quarter: 2010Q3

REPORT INFORMATION
  Report Type: 
  Country: None (occurrence: None)
  Receive Date: 20100731
  Receipt Date: 20080516
  Transmission Date: 20110219
  Serious: Yes (Other)
  Sender: FDA-Public Use
  Company Number: US-PFIZER INC-2008023623

PATIENT
  Sex: Female
  Weight: 90 kg

DRUGS (7)
  1. DEPO-MEDROL [Suspect]
     Indication: ASTHMA
     Dosage: 40 MG
     Route: 030
     Dates: start: 20080114
  2. ULTRAM [Concomitant]
  3. ALBUTEROL SULFATE [Concomitant]
  4. LEVOTHYROXINE SODIUM [Concomitant]
  5. MONTELUKAST SODIUM [Concomitant]
  6. SKELAXIN [Concomitant]
  7. ADVAIR DISKUS 100/50 [Concomitant]

REACTIONS (1)
  - ANAPHYLACTIC REACTION [None]
